FAERS Safety Report 11379818 (Version 1)
Quarter: 2015Q3

REPORT INFORMATION
  Report Type: Spontaneous
  Country: US (occurrence: None)
  Receive Date: 20150813
  Receipt Date: 20150813
  Transmission Date: 20151125
  Serious: Yes (Disabling)
  Sender: FDA-Public Use
  Company Number: None

PATIENT
  Age: 72 Year
  Sex: Female
  Weight: 64.86 kg

DRUGS (6)
  1. XANAX [Concomitant]
     Active Substance: ALPRAZOLAM
  2. MACROBID [Suspect]
     Active Substance: NITROFURANTOIN\NITROFURANTOIN MONOHYDRATE
     Indication: URINARY TRACT INFECTION
     Route: 048
     Dates: start: 20140615, end: 20140617
  3. POTASSIUM [Concomitant]
     Active Substance: POTASSIUM
  4. LOW DOSE APSIRIN [Concomitant]
  5. DILITIAZEM [Concomitant]
     Active Substance: DILTIAZEM
  6. DIOVAN [Concomitant]
     Active Substance: VALSARTAN

REACTIONS (20)
  - Hypoaesthesia [None]
  - Paraesthesia [None]
  - Rash [None]
  - Cough [None]
  - Head injury [None]
  - Decreased appetite [None]
  - Confusional state [None]
  - Body temperature increased [None]
  - Chest discomfort [None]
  - Fall [None]
  - Dyskinesia [None]
  - Balance disorder [None]
  - Malaise [None]
  - Capillary fragility [None]
  - Dyspnoea [None]
  - Burning feet syndrome [None]
  - Pain in extremity [None]
  - Muscle rigidity [None]
  - Blepharospasm [None]
  - Muscle twitching [None]

NARRATIVE: CASE EVENT DATE: 20140615
